FAERS Safety Report 5388937-0 (Version None)
Quarter: 2007Q3

REPORT INFORMATION
  Report Type: 
  Country: None (occurrence: None)
  Receive Date: 20070717
  Receipt Date: 20070709
  Transmission Date: 20080115
  Serious: Yes (Disabling, Other)
  Sender: FDA-Public Use
  Company Number: PHMT2007CA01283

PATIENT
  Age: 76 Year
  Sex: Female

DRUGS (6)
  1. ZOMETA [Suspect]
     Indication: OSTEOPOROSIS
     Dosage: 4 MG EVERY MONTH
     Route: 042
     Dates: start: 20010101, end: 20070327
  2. ACCURETIC [Concomitant]
  3. ASPIRIN [Concomitant]
  4. ESTRING [Concomitant]
  5. CARBOCAL D [Concomitant]
  6. FOSAMAX [Concomitant]
     Dates: start: 19990101

REACTIONS (2)
  - GINGIVAL EROSION [None]
  - OSTEONECROSIS [None]
